FAERS Safety Report 10047711 (Version 1)
Quarter: 2014Q1

REPORT INFORMATION
  Report Type: Spontaneous
  Country: US (occurrence: US)
  Receive Date: 20140331
  Receipt Date: 20140331
  Transmission Date: 20141002
  Serious: Yes (Hospitalization)
  Sender: FDA-Public Use
  Company Number: US-FRI-1000065976

PATIENT
  Age: 63 Year
  Sex: Male

DRUGS (2)
  1. SAPHRIS [Suspect]
     Indication: SCHIZOPHRENIA
     Route: 048
  2. ASPIRIN [Concomitant]
     Dosage: 81 MG

REACTIONS (2)
  - Paralysis [Recovered/Resolved]
  - Dyspnoea [Recovered/Resolved]
